FAERS Safety Report 5398479-4 (Version None)
Quarter: 2007Q3

REPORT INFORMATION
  Report Type: 
  Country: None (occurrence: None)
  Receive Date: 20070726
  Receipt Date: 20070228
  Transmission Date: 20080115
  Serious: No
  Sender: FDA-Public Use
  Company Number: US-AMGEN-KDL213251

PATIENT
  Sex: Male
  Weight: 84 kg

DRUGS (1)
  1. PROCRIT [Suspect]
     Indication: ANAEMIA
     Route: 058
     Dates: start: 20070131

REACTIONS (3)
  - INJECTION SITE REACTION [None]
  - JOINT SWELLING [None]
  - OEDEMA PERIPHERAL [None]
